FAERS Safety Report 4843647-0 (Version None)
Quarter: 2005Q4

REPORT INFORMATION
  Report Type: 
  Country: None (occurrence: None)
  Receive Date: 20051125
  Receipt Date: 20051110
  Transmission Date: 20060501
  Serious: Yes (Death)
  Sender: FDA-Public Use
  Company Number: 2005-US-01061

PATIENT
  Sex: Female

DRUGS (2)
  1. CLOZAPINE [Suspect]
     Indication: SCHIZOPHRENIA
     Dosage: 700 MG QD ORAL
     Route: 048
     Dates: start: 19980101, end: 20050801
  2. CHEMOTHERAPEUTICS NOS [Concomitant]

REACTIONS (1)
  - OVARIAN CANCER [None]
